FAERS Safety Report 17488958 (Version 1)
Quarter: 2020Q1

REPORT INFORMATION
  Report Type: Spontaneous
  Country: US (occurrence: US)
  Receive Date: 20200220
  Receipt Date: 20200220
  Transmission Date: 20200409
  Serious: Yes (Death, Hospitalization)
  Sender: FDA-Public Use
  Company Number: None

PATIENT
  Age: 76 Year
  Sex: Male
  Weight: 64.1 kg

DRUGS (5)
  1. PREDNISONE. [Suspect]
     Active Substance: PREDNISONE
     Dates: end: 20200107
  2. DOXORUBICIN HYDROCHLORIDE. [Suspect]
     Active Substance: DOXORUBICIN HYDROCHLORIDE
     Dates: end: 20200107
  3. CYCLOPHOSPHAMIDE. [Suspect]
     Active Substance: CYCLOPHOSPHAMIDE
     Dates: end: 20200107
  4. ETOPOSIDE (VP-16) [Suspect]
     Active Substance: ETOPOSIDE
     Dates: end: 20200107
  5. RITUXIMAB (MOAB C2B8 ANTI CD20, CHIMERIC) [Suspect]
     Active Substance: RITUXIMAB
     Dates: end: 20200102

REACTIONS (13)
  - Respiratory failure [None]
  - Clostridium difficile colitis [None]
  - Septic shock [None]
  - Escherichia sepsis [None]
  - Atrial fibrillation [None]
  - Upper gastrointestinal haemorrhage [None]
  - Pneumonia [None]
  - Pleural effusion [None]
  - Acute kidney injury [None]
  - Muscular weakness [None]
  - Arrhythmia [None]
  - Haemodialysis [None]
  - Hypotension [None]

NARRATIVE: CASE EVENT DATE: 20200210
